FAERS Safety Report 16913116 (Version 1)
Quarter: 2019Q4

REPORT INFORMATION
  Report Type: Spontaneous
  Country: DE (occurrence: DE)
  Receive Date: 20191014
  Receipt Date: 20191014
  Transmission Date: 20200122
  Serious: Yes (Life-Threatening, Disabling)
  Sender: FDA-Public Use
  Company Number: DE-TORRENT-00015670

PATIENT
  Age: 55 Year
  Sex: Female
  Weight: 65 kg

DRUGS (6)
  1. AMITRIPTYLIN [Concomitant]
     Active Substance: AMITRIPTYLINE
     Indication: FIBROMYALGIA
     Route: 048
  2. BISOPROLOL [Concomitant]
     Active Substance: BISOPROLOL
     Indication: TACHYCARDIA
     Route: 048
  3. HCT [Concomitant]
     Active Substance: HYDROCHLOROTHIAZIDE
     Indication: HYPERTENSION
     Route: 048
  4. RAMIPRIL. [Concomitant]
     Active Substance: RAMIPRIL
     Indication: HYPERTENSION
     Route: 048
  5. METAMIZOL [Concomitant]
     Active Substance: METAMIZOLE SODIUM
     Indication: FIBROMYALGIA
     Route: 048
  6. CELECOXIB. [Suspect]
     Active Substance: CELECOXIB
     Indication: FIBROMYALGIA
     Dosage: UNKNOWN
     Route: 048

REACTIONS (1)
  - Acute myocardial infarction [Unknown]

NARRATIVE: CASE EVENT DATE: 20190723
